FAERS Safety Report 4809882-2 (Version None)
Quarter: 2005Q4

REPORT INFORMATION
  Report Type: 
  Country: None (occurrence: None)
  Receive Date: 20051024
  Receipt Date: 20051006
  Transmission Date: 20060501
  Serious: Yes (Hospitalization)
  Sender: FDA-Public Use
  Company Number: TRP_0331_2005

PATIENT
  Age: 63 Year
  Sex: Female

DRUGS (4)
  1. RIBASPHERE [Suspect]
     Indication: HEPATITIS C
     Dosage: DF PO
     Route: 048
     Dates: start: 20050324
  2. PEG-INTRON [Suspect]
     Indication: HEPATITIS C
     Dosage: DF SC
     Route: 058
     Dates: start: 20050324
  3. EFFEXOR [Concomitant]
  4. TOPAMAX [Concomitant]

REACTIONS (7)
  - ABDOMINAL PAIN [None]
  - DIARRHOEA [None]
  - ENTERITIS INFECTIOUS [None]
  - HYPOTHYROIDISM [None]
  - IRRITABLE BOWEL SYNDROME [None]
  - MELAENA [None]
  - URINARY TRACT INFECTION [None]
